FAERS Safety Report 6170326-2 (Version None)
Quarter: 2009Q2

REPORT INFORMATION
  Report Type: 
  Country: None (occurrence: None)
  Receive Date: 20090428
  Receipt Date: 20090417
  Transmission Date: 20091009
  Serious: Yes (Hospitalization)
  Sender: FDA-Public Use
  Company Number: DE-PFIZER INC-2009199507

PATIENT

DRUGS (4)
  1. BLINDED *PLACEBO [Suspect]
     Indication: RENAL CANCER
     Dosage: 37.5 MG, 1X/DAY
     Route: 048
     Dates: start: 20081125
  2. BLINDED SUNITINIB MALATE [Suspect]
     Indication: RENAL CANCER
     Dosage: 37.5 MG, 1X/DAY
     Route: 048
     Dates: start: 20081125
  3. PANTOZOL [Concomitant]
     Dosage: 40 MG, 1X/DAY
     Route: 048
  4. DIOVAN HCT [Concomitant]
     Dosage: UNK
     Route: 048

REACTIONS (2)
  - INGUINAL HERNIA [None]
  - PARONYCHIA [None]
